FAERS Safety Report 12574293 (Version 1)
Quarter: 2016Q3

REPORT INFORMATION
  Report Type: Spontaneous
  Country: US (occurrence: US)
  Receive Date: 20160720
  Receipt Date: 20160720
  Transmission Date: 20161109
  Serious: No
  Sender: FDA-Public Use
  Company Number: US-TEVA-671797USA

PATIENT
  Age: 42 Year
  Sex: Female

DRUGS (1)
  1. ZECUITY [Suspect]
     Active Substance: SUMATRIPTAN SUCCINATE
     Indication: MIGRAINE
     Route: 062
     Dates: start: 20160521, end: 20160521

REACTIONS (16)
  - Application site inflammation [Recovering/Resolving]
  - Application site irritation [Recovering/Resolving]
  - Application site pruritus [Recovered/Resolved]
  - Application site erythema [Not Recovered/Not Resolved]
  - Application site paraesthesia [Recovering/Resolving]
  - Application site rash [Recovering/Resolving]
  - Application site mass [Recovering/Resolving]
  - Application site scab [Recovering/Resolving]
  - Application site swelling [Recovered/Resolved]
  - Product adhesion issue [Unknown]
  - Application site warmth [Recovering/Resolving]
  - Application site urticaria [Recovering/Resolving]
  - Drug hypersensitivity [Recovering/Resolving]
  - Application site pain [Recovering/Resolving]
  - Application site dryness [Recovering/Resolving]
  - Somnolence [Recovered/Resolved]

NARRATIVE: CASE EVENT DATE: 20160521
